FAERS Safety Report 12249316 (Version 1)
Quarter: 2016Q2

REPORT INFORMATION
  Report Type: Spontaneous
  Country: US (occurrence: None)
  Receive Date: 20160407
  Receipt Date: 20160407
  Transmission Date: 20160815
  Serious: Yes (Hospitalization)
  Sender: FDA-Public Use
  Company Number: None

PATIENT
  Age: 75 Year
  Sex: Male
  Weight: 82.6 kg

DRUGS (1)
  1. DOXYCYCLINE. [Suspect]
     Active Substance: DOXYCYCLINE
     Indication: PROSTATE INFECTION
     Route: 048
     Dates: start: 20160314, end: 20160402

REACTIONS (2)
  - Dysphagia [None]
  - Oesophagitis [None]

NARRATIVE: CASE EVENT DATE: 20160402
